FAERS Safety Report 10020038 (Version 1)
Quarter: 2014Q1

REPORT INFORMATION
  Report Type: Spontaneous
  Country: US (occurrence: US)
  Receive Date: 20140318
  Receipt Date: 20140318
  Transmission Date: 20141002
  Serious: Yes (Hospitalization, Other)
  Sender: FDA-Public Use
  Company Number: US-RB-064602-14

PATIENT
  Sex: Male

DRUGS (2)
  1. SUBOXONE TABLET [Suspect]
     Indication: PRODUCT USED FOR UNKNOWN INDICATION
     Dosage: UNKNOWN DOSING DETAILS
     Route: 064
  2. SUBUTEX [Suspect]
     Indication: PRODUCT USED FOR UNKNOWN INDICATION
     Dosage: UNKNOWN DOSING DETAILS
     Route: 064

REACTIONS (8)
  - Foetal exposure during pregnancy [Recovered/Resolved]
  - Neonatal disorder [Recovered/Resolved]
  - Tremor neonatal [Recovered/Resolved]
  - Insomnia [Recovered/Resolved]
  - Feeding disorder neonatal [Recovered/Resolved]
  - Gastrooesophageal reflux disease [Recovered/Resolved]
  - Speech disorder developmental [Unknown]
  - Ear infection [Recovered/Resolved]
